FAERS Safety Report 5235726-3 (Version None)
Quarter: 2007Q1

REPORT INFORMATION
  Report Type: 
  Country: None (occurrence: None)
  Receive Date: 20061208
  Receipt Date: 20060614
  Transmission Date: 20070707
  Serious: Yes (Other)
  Sender: FDA-Public Use
  Company Number: 2006UW12756

PATIENT
  Age: 76 Year
  Sex: Female
  Weight: 52.163 kg

DRUGS (7)
  1. CRESTOR [Suspect]
     Indication: BLOOD CHOLESTEROL INCREASED
     Dosage: 10 MG QD PO
     Route: 048
     Dates: start: 20060401
  2. TRAZODONE HCL [Concomitant]
  3. NEXIUM ORAL [Concomitant]
  4. CLONAZEPAM [Concomitant]
  5. ETODOLAC [Concomitant]
  6. DETROL [Concomitant]
  7. CITALOPRAM HYDROBROMIDE [Concomitant]

REACTIONS (1)
  - ALOPECIA [None]
